FAERS Safety Report 23299025 (Version 2)
Quarter: 2024Q4

REPORT INFORMATION
  Report Type: Spontaneous
  Country: US (occurrence: US)
  Receive Date: 20231215
  Receipt Date: 20241216
  Transmission Date: 20250115
  Serious: No
  Sender: ENDO
  Company Number: ENDB23-03978

PATIENT
  Sex: Male

DRUGS (2)
  1. XIAFLEX [Suspect]
     Active Substance: COLLAGENASE CLOSTRIDIUM HISTOLYTICUM
     Indication: Peyronie^s disease
     Dosage: 0.58 MILLIGRAM, UNKNOWN
     Route: 051
     Dates: start: 202309
  2. XIAFLEX [Suspect]
     Active Substance: COLLAGENASE CLOSTRIDIUM HISTOLYTICUM
     Dosage: 0.58 MILLIGRAM, UNKNOWN
     Route: 051

REACTIONS (5)
  - Abdominal pain [Unknown]
  - Anaemia [Unknown]
  - Pyrexia [Unknown]
  - Swelling [Unknown]
  - Haematoma [Unknown]

NARRATIVE: CASE EVENT DATE: 20230101
